FAERS Safety Report 14986520 (Version 1)
Quarter: 2018Q2

REPORT INFORMATION
  Report Type: Report from Study
  Country: ES (occurrence: ES)
  Receive Date: 20180608
  Receipt Date: 20180608
  Transmission Date: 20180711
  Serious: Yes (Hospitalization)
  Sender: FDA-Public Use
  Company Number: ES-TEVA-2018-ES-903237

PATIENT
  Age: 50 Year
  Sex: Female

DRUGS (6)
  1. TAMOXIFENO (733A) [Suspect]
     Active Substance: TAMOXIFEN
     Indication: BREAST CANCER
     Dosage: 20 MG DIA
     Route: 048
     Dates: start: 20140731
  2. NOLOTIL 575 [Concomitant]
     Route: 048
     Dates: start: 20140731
  3. ENANTYUM 25 MG CAPSULAS DURAS , 20 C?PSULAS [Concomitant]
     Route: 048
     Dates: start: 20140731
  4. SERTRALINA 100 [Concomitant]
     Dosage: 1 CP DIA
     Route: 048
     Dates: start: 20140731
  5. LEXATIN 1,5 [Concomitant]
     Route: 048
     Dates: start: 20140731
  6. OMEPRAZOL 20 [Concomitant]
     Active Substance: OMEPRAZOLE
     Dosage: 1 CP DIA
     Route: 048
     Dates: start: 20140731

REACTIONS (1)
  - Pancreatitis acute [Recovered/Resolved]

NARRATIVE: CASE EVENT DATE: 20170826
